FAERS Safety Report 9148380 (Version 1)
Quarter: 2013Q1

REPORT INFORMATION
  Report Type: Spontaneous
  Country: US (occurrence: None)
  Receive Date: 20130215
  Receipt Date: 20130215
  Transmission Date: 20140127
  Serious: Yes (Death)
  Sender: FDA-Public Use
  Company Number: SYM-2013-00275

PATIENT
  Age: 49 Year
  Sex: Male

DRUGS (7)
  1. VENLAFAXINE [Suspect]
     Indication: PRODUCT USED FOR UNKNOWN INDICATION
     Route: 048
  2. SIMVASTATIN [Concomitant]
  3. LITHIUM [Concomitant]
  4. RISPERIDONE [Concomitant]
  5. MIRTAZAPINE [Concomitant]
  6. TRAZODONE [Concomitant]
  7. LOSARTAN [Concomitant]

REACTIONS (17)
  - Completed suicide [None]
  - Lethargy [None]
  - Somnolence [None]
  - Sinus tachycardia [None]
  - Blood pressure decreased [None]
  - General physical health deterioration [None]
  - Convulsion [None]
  - Haemodynamic instability [None]
  - Electrocardiogram QRS complex prolonged [None]
  - Ileus [None]
  - Transaminases increased [None]
  - Aspartate aminotransferase increased [None]
  - Alanine aminotransferase increased [None]
  - Blood alkaline phosphatase increased [None]
  - Ventricular arrhythmia [None]
  - Cardiogenic shock [None]
  - Toxicity to various agents [None]
